FAERS Safety Report 22634429 (Version 1)
Quarter: 2023Q2

REPORT INFORMATION
  Report Type: Spontaneous
  Country: US (occurrence: None)
  Receive Date: 20230620
  Receipt Date: 20230620
  Transmission Date: 20230721
  Serious: No
  Sender: FDA-Public Use
  Company Number: None

PATIENT
  Age: 56 Year
  Sex: Female

DRUGS (1)
  1. GENVOYA [Suspect]
     Active Substance: COBICISTAT\ELVITEGRAVIR\EMTRICITABINE\TENOFOVIR ALAFENAMIDE FUMARATE
     Dosage: OTHER STRENGTH : 150/150/200/TAF 10;?OTHER QUANTITY : 150/150/200 TAF 10;?FREQUENCY : DAILY;?
     Route: 048

REACTIONS (2)
  - Headache [None]
  - Neck pain [None]

NARRATIVE: CASE EVENT DATE: 20230620
